FAERS Safety Report 6608374-8 (Version None)
Quarter: 2010Q1

REPORT INFORMATION
  Report Type: 
  Country: None (occurrence: None)
  Receive Date: 20100301
  Receipt Date: 20100217
  Transmission Date: 20100710
  Serious: Yes (Hospitalization)
  Sender: FDA-Public Use
  Company Number: FR-PFIZER INC-2006127366

PATIENT
  Age: 62 Year
  Sex: Female
  Weight: 56 kg

DRUGS (22)
  1. SUNITINIB MALATE [Suspect]
     Indication: RENAL CANCER
     Dosage: 37.5 MG, 1X/DAY
     Route: 048
     Dates: start: 20060201
  2. LOPERAMIDE HCL [Concomitant]
     Dates: start: 20060704
  3. DOMPERIDONE [Concomitant]
     Dates: start: 20060127
  4. SOLUPRED [Concomitant]
     Dates: start: 20060122
  5. CORDARONE [Concomitant]
     Dates: start: 20050130
  6. MORPHINE [Concomitant]
     Dates: start: 20060122, end: 20060122
  7. SKENAN [Concomitant]
     Dates: start: 20060124, end: 20060127
  8. DUPHALAC [Concomitant]
     Dates: start: 20060124, end: 20060127
  9. EDUCTYL [Concomitant]
     Dates: start: 20060124, end: 20060127
  10. DURAGESIC-100 [Concomitant]
     Dates: start: 20060124, end: 20060127
  11. XANAX [Concomitant]
     Dates: start: 20060127
  12. VOGALENE [Concomitant]
     Dates: start: 20060624, end: 20060720
  13. LOPERAMIDE [Concomitant]
     Dates: start: 20060704
  14. ALUMINUM HYDROXIDE AND MAGNESIUM TRISILICATE [Concomitant]
     Dates: start: 20060704
  15. TIORFAN [Concomitant]
     Dates: start: 20060704
  16. ALLOPURINOL [Concomitant]
     Dates: start: 20060502
  17. ACETAMINOPHEN AND CODEINE PHOSPHATE [Concomitant]
     Dates: start: 20060201, end: 20060314
  18. PRIMPERAN [Concomitant]
     Dates: start: 20060314, end: 20060314
  19. DEROXAT [Concomitant]
     Dates: start: 20060310
  20. ALODONT [Concomitant]
     Dates: start: 20060801
  21. BIRODOGYL [Concomitant]
     Dates: start: 20060828, end: 20060902
  22. RHINOFLUIMUCIL [Concomitant]
     Dates: start: 20060811, end: 20060925

REACTIONS (1)
  - MALAISE [None]
